FAERS Safety Report 19928721 (Version 2)
Quarter: 2022Q3

REPORT INFORMATION
  Report Type: Spontaneous
  Country: CA (occurrence: CA)
  Receive Date: 20211007
  Receipt Date: 20220818
  Transmission Date: 20221027
  Serious: Yes (Life-Threatening, Hospitalization, Other)
  Sender: FDA-Public Use
  Company Number: CA-MLMSERVICE-20210922-3119653-1

PATIENT
  Age: 69 Year
  Sex: Male

DRUGS (6)
  1. MYCOPHENOLIC ACID [Suspect]
     Active Substance: MYCOPHENOLIC ACID
     Indication: Cardiogenic shock
     Route: 048
  2. METHYLPREDNISOLONE [Suspect]
     Active Substance: METHYLPREDNISOLONE
     Indication: Myocarditis
     Route: 042
  3. AMIODARONE [Concomitant]
     Active Substance: AMIODARONE
     Indication: Ventricular tachycardia
     Route: 042
  4. MYCOPHENOLIC ACID [Suspect]
     Active Substance: MYCOPHENOLIC ACID
     Indication: Myocarditis
     Route: 048
  5. METHYLPREDNISOLONE [Suspect]
     Active Substance: METHYLPREDNISOLONE
     Indication: Myocarditis
     Dosage: ESCALATED TO A PULSE DOSE OF 1 G DAILY FOR 3 DAYS
     Route: 042
  6. METHYLPREDNISOLONE [Suspect]
     Active Substance: METHYLPREDNISOLONE
     Indication: Cardiogenic shock
     Route: 042

REACTIONS (11)
  - Gastritis [Unknown]
  - Cytomegalovirus viraemia [Unknown]
  - Anaemia [Unknown]
  - Oesophagitis [Unknown]
  - Somnolence [Unknown]
  - Respiratory failure [Unknown]
  - Gastrointestinal haemorrhage [Unknown]
  - Duodenal ulcer [Unknown]
  - Gastric ulcer [Unknown]
  - Drug ineffective [Unknown]
  - Off label use [Unknown]
